FAERS Safety Report 7260175-6 (Version None)
Quarter: 2011Q1

REPORT INFORMATION
  Report Type: 
  Country: None (occurrence: None)
  Receive Date: 20110130
  Receipt Date: 20101001
  Transmission Date: 20110831
  Serious: No
  Sender: FDA-Public Use
  Company Number: US-ABBOTT-10P-163-0676861-00

PATIENT
  Sex: Female
  Weight: 83.99 kg

DRUGS (11)
  1. FOLIC ACID [Concomitant]
     Indication: RHEUMATOID ARTHRITIS
  2. HUMIRA [Suspect]
     Indication: RHEUMATOID ARTHRITIS
     Route: 058
  3. VITAMIN D [Concomitant]
     Indication: PRODUCT USED FOR UNKNOWN INDICATION
  4. CALCIUM [Concomitant]
     Indication: PRODUCT USED FOR UNKNOWN INDICATION
  5. ASCORBIC ACID [Concomitant]
     Indication: PRODUCT USED FOR UNKNOWN INDICATION
  6. CALCITONIN [Concomitant]
     Indication: PRODUCT USED FOR UNKNOWN INDICATION
  7. RESTASIS [Concomitant]
     Indication: DRY EYE
     Route: 047
  8. METHOTREXATE [Concomitant]
     Indication: RHEUMATOID ARTHRITIS
  9. HUMIRA [Suspect]
     Indication: RHEUMATOID ARTHRITIS
     Route: 058
  10. COQ10 [Concomitant]
     Indication: PRODUCT USED FOR UNKNOWN INDICATION
  11. FISH OIL [Concomitant]
     Indication: PRODUCT USED FOR UNKNOWN INDICATION

REACTIONS (2)
  - DEVICE MALFUNCTION [None]
  - BACK PAIN [None]
